FAERS Safety Report 5719074-0 (Version None)
Quarter: 2008Q2

REPORT INFORMATION
  Report Type: 
  Country: None (occurrence: None)
  Receive Date: 20080423
  Receipt Date: 20080409
  Transmission Date: 20081010
  Serious: Yes (Hospitalization)
  Sender: FDA-Public Use
  Company Number: 2008-01234

PATIENT
  Age: 57 Year
  Sex: Female

DRUGS (6)
  1. VELCADE [Suspect]
     Indication: MESOTHELIOMA MALIGNANT
     Dosage: 1.7 MG, INTRAVENOUS
     Route: 042
     Dates: end: 20080326
  2. CISPLATIN [Suspect]
     Dosage: 2 MG, INTRAVENOUS
     Route: 042
     Dates: end: 20080326
  3. PENICILLIN [Concomitant]
  4. SIMVASTATIN [Concomitant]
  5. LOPERAMIDE [Concomitant]
  6. CODEINE SUL TAB [Concomitant]

REACTIONS (4)
  - DIZZINESS [None]
  - HYPOKALAEMIA [None]
  - HYPOMAGNESAEMIA [None]
  - HYPOTENSION [None]
